FAERS Safety Report 18422559 (Version 1)
Quarter: 2020Q4

REPORT INFORMATION
  Report Type: Spontaneous
  Country: US (occurrence: US)
  Receive Date: 20201023
  Receipt Date: 20201023
  Transmission Date: 20210114
  Serious: Yes (Disabling, Other)
  Sender: FDA-Public Use
  Company Number: US-PFIZER INC-2020411410

PATIENT

DRUGS (4)
  1. OXYCODONE [Suspect]
     Active Substance: OXYCODONE
     Dosage: UNK
  2. OXYCONTIN [Suspect]
     Active Substance: OXYCODONE HYDROCHLORIDE
     Dosage: UNK
  3. OXYIR [Suspect]
     Active Substance: OXYCODONE HYDROCHLORIDE
     Dosage: UNK
  4. XANAX [Suspect]
     Active Substance: ALPRAZOLAM
     Dosage: UNK

REACTIONS (11)
  - Depression [Unknown]
  - Drug dependence [Unknown]
  - Hypertension [Unknown]
  - Myocardial infarction [Unknown]
  - Headache [Unknown]
  - Loss of personal independence in daily activities [Unknown]
  - Stress [Unknown]
  - Post-traumatic stress disorder [Unknown]
  - Disability [Unknown]
  - Emotional distress [Unknown]
  - Withdrawal syndrome [Unknown]
